FAERS Safety Report 15601324 (Version 1)
Quarter: 2018Q4

REPORT INFORMATION
  Report Type: Report from Study
  Country: CR (occurrence: CR)
  Receive Date: 20181109
  Receipt Date: 20181109
  Transmission Date: 20190205
  Serious: Yes (Other)
  Sender: FDA-Public Use
  Company Number: PHHY2018CR148940

PATIENT
  Age: 57 Year
  Sex: Male

DRUGS (1)
  1. EXFORGE HCT [Suspect]
     Active Substance: AMLODIPINE BESYLATE\HYDROCHLOROTHIAZIDE\VALSARTAN
     Indication: PRODUCT USED FOR UNKNOWN INDICATION
     Dosage: (AMLODIPINE 10 MG, HYDROCHLOROTHIAZIDE 25MG, VALSARTAN 160MG)
     Route: 065

REACTIONS (5)
  - Blood glucose increased [Unknown]
  - Hypertension [Unknown]
  - Diabetes mellitus [Unknown]
  - Road traffic accident [Unknown]
  - Epinephrine increased [Unknown]
